FAERS Safety Report 19776424 (Version 2)
Quarter: 2021Q3

REPORT INFORMATION
  Report Type: Report from Study
  Country: None (occurrence: US)
  Receive Date: 20210902
  Receipt Date: 20210907
  Transmission Date: 20211014
  Serious: Yes (Hospitalization)
  Sender: FDA-Public Use
  Company Number: US-ABBVIE-21K-163-4060788-00

PATIENT
  Age: 48 Year
  Sex: Male
  Weight: 63.56 kg

DRUGS (5)
  1. COVID?19 [Concomitant]
     Route: 030
     Dates: start: 202106, end: 202106
  2. BUPRENORPHINE. [Concomitant]
     Active Substance: BUPRENORPHINE
     Indication: PAIN
  3. LYRICA [Concomitant]
     Active Substance: PREGABALIN
     Indication: ANKYLOSING SPONDYLITIS
  4. COVID?19 [Concomitant]
     Indication: COVID-19 IMMUNISATION
     Route: 030
     Dates: start: 202104, end: 202104
  5. HUMIRA [Suspect]
     Active Substance: ADALIMUMAB
     Indication: ANKYLOSING SPONDYLITIS
     Route: 058
     Dates: start: 202107

REACTIONS (5)
  - Staphylococcal infection [Recovering/Resolving]
  - Joint swelling [Recovering/Resolving]
  - Device issue [Unknown]
  - Incorrect dose administered [Recovered/Resolved]
  - Abscess [Recovering/Resolving]

NARRATIVE: CASE EVENT DATE: 20210806
